FAERS Safety Report 6371593-2 (Version None)
Quarter: 2009Q3

REPORT INFORMATION
  Report Type: 
  Country: None (occurrence: None)
  Receive Date: 20090923
  Receipt Date: 20071008
  Transmission Date: 20100115
  Serious: Yes (Hospitalization, Other)
  Sender: FDA-Public Use
  Company Number: US-ASTRAZENECA-2007UW18640

PATIENT
  Age: 70 Year
  Sex: Female
  Weight: 75.3 kg

DRUGS (23)
  1. SEROQUEL [Suspect]
     Indication: SCHIZOPHRENIA
     Dosage: STRENGTH- 25 MG, 100 MG
     Route: 048
     Dates: start: 19990706, end: 20060501
  2. SEROQUEL [Suspect]
     Route: 048
     Dates: start: 20000101, end: 20060401
  3. KLONOPIN [Concomitant]
  4. ZOCOR [Concomitant]
     Indication: HYPERLIPIDAEMIA
     Dosage: STRENGTH- 20 MG, 40 MG. DOSE- 20-40 MG DAILY
     Dates: start: 20010108
  5. CLONAZEPAM [Concomitant]
     Dates: start: 19990715
  6. AUGMENTIN [Concomitant]
     Dosage: 875-125
     Dates: start: 20001206
  7. SULFAMETHOXAZOLE AND TRIMETHOPRIM DOUBLE STRENGTH [Concomitant]
     Dates: start: 20010102
  8. RISPERDAL [Concomitant]
     Dosage: STRENGTH- 1 MG, 2 MG
     Dates: start: 19990715
  9. PYRIDIUM PLUS [Concomitant]
     Dates: start: 20010213
  10. DIPHENOXYLATE HCL + ATROPINE SULFATE [Concomitant]
     Dates: start: 20011101
  11. AVANDIA [Concomitant]
     Dates: start: 20011210
  12. HYDROCHLOROTHIAZIDE [Concomitant]
     Dates: start: 20020221
  13. VERAPAMIL SA [Concomitant]
     Dates: start: 20020225
  14. ACTOS [Concomitant]
     Dates: start: 20020530
  15. PRECOSE [Concomitant]
     Dosage: STRENGTH- 25 MG, 50 MG
     Dates: start: 20020701
  16. PRANDIN [Concomitant]
     Dates: start: 20030426
  17. ZITHROMAX [Concomitant]
     Dates: start: 20030612
  18. GUAIFENEX PSE [Concomitant]
     Dosage: STRENGTH- 600/120
     Dates: start: 20030612
  19. DIAMOX SEQUELS [Concomitant]
     Dates: start: 20040617
  20. CARTIA XT [Concomitant]
     Dates: start: 20060331
  21. VASOTEC [Concomitant]
     Dates: start: 19990706
  22. LASIX [Concomitant]
     Dates: start: 20010312
  23. NEXIUM [Concomitant]
     Indication: REFLUX LARYNGITIS
     Dates: start: 20070816

REACTIONS (5)
  - DIABETES MELLITUS [None]
  - DIABETES MELLITUS INADEQUATE CONTROL [None]
  - RENAL FAILURE [None]
  - RENAL FAILURE ACUTE [None]
  - TYPE 1 DIABETES MELLITUS [None]
